FAERS Safety Report 22074343 (Version 1)
Quarter: 2023Q1

REPORT INFORMATION
  Report Type: Spontaneous
  Country: US (occurrence: US)
  Receive Date: 20230308
  Receipt Date: 20230308
  Transmission Date: 20230417
  Serious: No
  Sender: FDA-Public Use
  Company Number: US-PFIZER INC-202300094291

PATIENT
  Age: 76 Year
  Sex: Male

DRUGS (2)
  1. PAXLOVID [Suspect]
     Active Substance: NIRMATRELVIR\RITONAVIR
     Indication: COVID-19 treatment
     Dosage: UNK
     Dates: start: 202302, end: 202302
  2. PAXLOVID [Suspect]
     Active Substance: NIRMATRELVIR\RITONAVIR
     Dosage: UNK
     Dates: start: 202303

REACTIONS (4)
  - Intentional product misuse [Unknown]
  - Oropharyngeal pain [Unknown]
  - Somnolence [Unknown]
  - Pain [Unknown]

NARRATIVE: CASE EVENT DATE: 20230201
